FAERS Safety Report 17002454 (Version 1)
Quarter: 2019Q4

REPORT INFORMATION
  Report Type: Report from Study
  Country: BR (occurrence: BR)
  Receive Date: 20191107
  Receipt Date: 20191107
  Transmission Date: 20200122
  Serious: Yes (Other)
  Sender: FDA-Public Use
  Company Number: BR-TEVA-2019-BR-1133114

PATIENT
  Sex: Female

DRUGS (3)
  1. TECFIDERA [Concomitant]
     Active Substance: DIMETHYL FUMARATE
  2. SELENE [Concomitant]
  3. COPAXONE [Suspect]
     Active Substance: GLATIRAMER ACETATE
     Indication: MULTIPLE SCLEROSIS
     Dates: start: 20161123

REACTIONS (1)
  - Multiple sclerosis [Not Recovered/Not Resolved]
